FAERS Safety Report 20353972 (Version 3)
Quarter: 2022Q1

REPORT INFORMATION
  Report Type: Report from Study
  Country: US (occurrence: US)
  Receive Date: 20220120
  Receipt Date: 20220216
  Transmission Date: 20220424
  Serious: Yes (Hospitalization, Other)
  Sender: FDA-Public Use
  Company Number: US-REGENERON PHARMACEUTICALS, INC.-2022-13726

PATIENT
  Age: 35 Year
  Sex: Female

DRUGS (16)
  1. CASIRIVIMAB\IMDEVIMAB [Suspect]
     Active Substance: CASIRIVIMAB\IMDEVIMAB
     Indication: COVID-19
     Dosage: 1200 MG, SINGLE
     Route: 058
     Dates: start: 20220106, end: 20220106
  2. BENZONATATE [Concomitant]
     Active Substance: BENZONATATE
     Indication: Cough
     Dosage: UNK
     Route: 065
  3. ALBUTEROL [Concomitant]
     Active Substance: ALBUTEROL
     Indication: Wheezing
     Dosage: 3 ML (2.5 MG) EVERY 6H AS NEEDED
     Route: 055
     Dates: start: 20211219, end: 20220118
  4. VITAMIN B12 [Concomitant]
     Active Substance: CYANOCOBALAMIN
     Indication: Product used for unknown indication
     Dosage: INJECT 1 ML (1,000 MCG TOTAL) INTO THE SHOULDER, THIGH, OR BUTTOCKS EVERY 30 (THIRTY) DAYS
     Dates: start: 20211108
  5. CYMBALTA [Concomitant]
     Active Substance: DULOXETINE HYDROCHLORIDE
     Indication: Product used for unknown indication
     Dosage: 30 MG (1 CAPSULE), QD
     Route: 048
     Dates: start: 20211207
  6. VIVELLE-DOT [Concomitant]
     Active Substance: ESTRADIOL
     Indication: Product used for unknown indication
     Dosage: 1 PATCH 2 TIMES A WEEK
     Route: 062
     Dates: start: 20211209
  7. FLORINEF ACETATE [Concomitant]
     Active Substance: FLUDROCORTISONE ACETATE
     Indication: Product used for unknown indication
     Dosage: 0.1 MG, QD
     Route: 048
  8. NEURONTIN [Concomitant]
     Active Substance: GABAPENTIN
     Indication: Pain
     Dosage: 300 MG, TID
     Route: 048
     Dates: start: 20211222
  9. CORTEF                             /00028601/ [Concomitant]
     Indication: Illness
     Dosage: TAKES 3 TABLETS IN AM, 2 TABLETS IN AFTERNOON, AND 1 TABLET IN PM.
     Dates: start: 20211105
  10. LINZESS [Concomitant]
     Active Substance: LINACLOTIDE
     Indication: Product used for unknown indication
     Dosage: 1 DF, UNK
     Route: 048
     Dates: start: 20210909
  11. REMERON [Concomitant]
     Active Substance: MIRTAZAPINE
     Indication: Product used for unknown indication
     Dosage: 7.5 MG, NIGHTLY
     Route: 048
     Dates: start: 20211220
  12. SINGULAIR [Concomitant]
     Active Substance: MONTELUKAST SODIUM
     Indication: Product used for unknown indication
     Dosage: 10 MG, QD
     Route: 048
     Dates: start: 20210923
  13. PHENERGAN                          /00033001/ [Concomitant]
     Indication: Nausea
     Dosage: 12.5MG TABLET Q6HRS PRN
     Route: 048
     Dates: start: 20210921
  14. PHENERGAN                          /00033001/ [Concomitant]
     Indication: Vomiting
  15. ZOFRAN                             /00955301/ [Concomitant]
     Indication: Nausea
     Dosage: 8MG Q8HRS PRN
     Route: 065
     Dates: start: 20210923
  16. ZOFRAN                             /00955301/ [Concomitant]
     Indication: Vomiting

REACTIONS (8)
  - Drug hypersensitivity [Recovered/Resolved]
  - Abdominal pain [Recovering/Resolving]
  - Constipation [Recovering/Resolving]
  - Chest pain [Recovering/Resolving]
  - Cough [Recovering/Resolving]
  - Nausea [Recovering/Resolving]
  - Back pain [Recovering/Resolving]
  - Blood pressure increased [Recovered/Resolved]

NARRATIVE: CASE EVENT DATE: 19520106
